FAERS Safety Report 10377856 (Version 1)
Quarter: 2014Q3

REPORT INFORMATION
  Report Type: Report from Study
  Country: MX (occurrence: MX)
  Receive Date: 20140812
  Receipt Date: 20140812
  Transmission Date: 20150326
  Serious: Yes (Other)
  Sender: FDA-Public Use
  Company Number: PHHY2014MX099068

PATIENT
  Age: 67 Year
  Sex: Female

DRUGS (8)
  1. TRILEPTAL [Suspect]
     Active Substance: OXCARBAZEPINE
     Dosage: 1 DF (1 TABLET), DAILY
     Route: 048
  2. EXFORGE [Suspect]
     Active Substance: AMLODIPINE BESYLATE\VALSARTAN
     Indication: HYPERTENSION
     Dosage: 1.5 DF (1.5 TABLET), DAILY (1 TABLET IN THE MORNING AND HALF TABLET AT NIGHT)
     Dates: start: 20140506
  3. TRILEPTAL [Suspect]
     Active Substance: OXCARBAZEPINE
     Indication: CONVULSION
     Dosage: 1 DF (1 TABLET), DAILY
     Route: 048
  4. TRILEPTAL [Suspect]
     Active Substance: OXCARBAZEPINE
     Dosage: 2 DF (2 TABLETS), DAILY
     Route: 048
     Dates: start: 20140506, end: 201406
  5. INDERALICI [Concomitant]
     Indication: HYPERTENSION
     Dosage: 3 DF, DAILY
     Dates: start: 201405
  6. TRILEPTAL [Suspect]
     Active Substance: OXCARBAZEPINE
     Dosage: 3 DF (3 TABLETS), DAILY
     Route: 048
  7. ASPIRIN. [Concomitant]
     Active Substance: ASPIRIN
     Indication: ANTICOAGULANT THERAPY
     Dosage: 1 DF, DAILY
     Dates: start: 201406
  8. KEPPRA [Concomitant]
     Active Substance: LEVETIRACETAM
     Indication: CONVULSION
     Dosage: 2 DF, DAILY
     Dates: start: 201406

REACTIONS (13)
  - Speech disorder [Recovered/Resolved]
  - Somnolence [Recovered/Resolved]
  - Dysstasia [Recovered/Resolved]
  - Blood potassium abnormal [Recovered/Resolved]
  - Muscular weakness [Recovered/Resolved]
  - Feeling abnormal [Recovered/Resolved]
  - Gait disturbance [Recovered/Resolved]
  - Drug intolerance [Recovered/Resolved]
  - Fall [Recovered/Resolved]
  - Cerebrovascular accident [Recovered/Resolved]
  - Vomiting [Recovered/Resolved]
  - Coordination abnormal [Recovered/Resolved]
  - Blood sodium abnormal [Recovered/Resolved]

NARRATIVE: CASE EVENT DATE: 20140626
